FAERS Safety Report 7947133-0 (Version None)
Quarter: 2011Q4

REPORT INFORMATION
  Report Type: 
  Country: None (occurrence: None)
  Receive Date: 20111129
  Receipt Date: 20110725
  Transmission Date: 20120403
  Serious: No
  Sender: FDA-Public Use
  Company Number: US-BAYER-2011-063386

PATIENT
  Sex: Female

DRUGS (3)
  1. CIPROFLOXACIN [Suspect]
     Dosage: UNK
     Dates: start: 20110301
  2. LEVAQUIN [Concomitant]
  3. CIPROFLOXACIN [Suspect]
     Dosage: UNK
     Dates: start: 20100701

REACTIONS (4)
  - MUSCULOSKELETAL DISCOMFORT [None]
  - LIMB DISCOMFORT [None]
  - GAIT DISTURBANCE [None]
  - TENDON PAIN [None]
